FAERS Safety Report 6211929-6 (Version None)
Quarter: 2009Q2

REPORT INFORMATION
  Report Type: 
  Country: None (occurrence: None)
  Receive Date: 20090529
  Receipt Date: 20090518
  Transmission Date: 20091009
  Serious: Yes (Hospitalization)
  Sender: FDA-Public Use
  Company Number: SPV1-2009-00676

PATIENT
  Age: 57 Year
  Sex: Male
  Weight: 79.4 kg

DRUGS (6)
  1. FOSRENOL [Suspect]
     Indication: HYPERPHOSPHATAEMIA
     Dosage: TWO 1000 MG, WITH BREAKFAST AND LUNCH, ORAL; THREE 1000 MG, WITH DINNER, ORAL
     Route: 048
     Dates: start: 20070101
  2. RENAVIT (ASCORBIC ACID, BIOTIN, CALCIUM PANTOTHENATE, FOLIC ACID NICOT [Concomitant]
  3. SENSIPAR [Concomitant]
  4. DIOVAN [Concomitant]
  5. NORVASC [Concomitant]
  6. ATENOLOL [Concomitant]

REACTIONS (5)
  - BACK PAIN [None]
  - ERUCTATION [None]
  - KIDNEY ENLARGEMENT [None]
  - PRURITUS GENERALISED [None]
  - RETCHING [None]
